FAERS Safety Report 19023409 (Version 1)
Quarter: 2021Q1

REPORT INFORMATION
  Report Type: Report from Study
  Country: US (occurrence: US)
  Receive Date: 20210318
  Receipt Date: 20210318
  Transmission Date: 20210420
  Serious: Yes (Hospitalization)
  Sender: FDA-Public Use
  Company Number: US-PACIRA-2021000215

PATIENT
  Age: 74 Year
  Sex: Male
  Weight: 95 kg

DRUGS (15)
  1. BUPIVACAINE. [Suspect]
     Active Substance: BUPIVACAINE
     Indication: POSTOPERATIVE ANALGESIA
     Dosage: 2019; 30ML
     Route: 065
  2. DEXAMETHASONE. [Concomitant]
     Active Substance: DEXAMETHASONE
     Indication: INTRAOPERATIVE CARE
     Dosage: NOT REPORTED
     Route: 065
  3. OXYCONTIN [Concomitant]
     Active Substance: OXYCODONE HYDROCHLORIDE
     Indication: POSTOPERATIVE ANALGESIA
     Dosage: 09:06AM: 12 HR TABLET 10 MG 10
     Route: 048
     Dates: start: 20200212
  4. OXYGEN. [Concomitant]
     Active Substance: OXYGEN
     Indication: INTRAOPERATIVE CARE
     Dosage: NOT REPORTED
     Route: 065
  5. NORCO 5 [Concomitant]
     Indication: POSTOPERATIVE ANALGESIA
     Dosage: 9:34AM
     Route: 065
     Dates: start: 20200212
  6. CELEBREX [Concomitant]
     Active Substance: CELECOXIB
     Indication: PREOPERATIVE CARE
     Dosage: NOT PROVIDED
     Route: 065
  7. PROPOFOL. [Concomitant]
     Active Substance: PROPOFOL
     Indication: INTRAOPERATIVE CARE
     Dosage: NOT REPORTED
     Route: 065
  8. MIDAZOLAM. [Concomitant]
     Active Substance: MIDAZOLAM
     Indication: INTRAOPERATIVE CARE
     Dosage: NOT REPORTED
     Route: 065
  9. SEVOFLURANE. [Concomitant]
     Active Substance: SEVOFLURANE
     Indication: INTRAOPERATIVE CARE
     Dosage: NOT REPORTED
     Route: 065
  10. EXPAREL [Suspect]
     Active Substance: BUPIVACAINE
     Indication: POSTOPERATIVE ANALGESIA
     Dosage: 2019 20ML EXPAREL AND 40ML SALINE TOTAL VOLUME 60ML
     Route: 065
  11. ONDANSETRON [Concomitant]
     Active Substance: ONDANSETRON
     Indication: INTRAOPERATIVE CARE
     Dosage: NOT REPORTED
     Route: 065
  12. TYLENOL [Concomitant]
     Active Substance: ACETAMINOPHEN
     Indication: INTRAOPERATIVE CARE
     Dosage: NOT REPORTED
     Route: 042
  13. NORCO [Concomitant]
     Active Substance: ACETAMINOPHEN\HYDROCODONE BITARTRATE
     Indication: POSTOPERATIVE ANALGESIA
     Dosage: 1?2 TABLETS BY MOUTH EVERY 4 HOURS AS NEEDED FOR PAIN AT DISCHARGE, FOR UP TO 10 DAYS
     Route: 048
  14. FENTANYL. [Concomitant]
     Active Substance: FENTANYL
     Indication: INTRAOPERATIVE CARE
     Dosage: NOT REPORTED
     Route: 065
  15. SALINE [Concomitant]
     Active Substance: SODIUM CHLORIDE
     Indication: POSTOPERATIVE ANALGESIA
     Dosage: 2019; 40ML WITH 20ML EXPAREL. TOTAL VOLUME 60ML
     Route: 065

REACTIONS (1)
  - Postoperative wound infection [Unknown]
